FAERS Safety Report 6456243-9 (Version None)
Quarter: 2009Q4

REPORT INFORMATION
  Report Type: 
  Country: None (occurrence: None)
  Receive Date: 20091125
  Receipt Date: 20091118
  Transmission Date: 20100525
  Serious: Yes (Hospitalization)
  Sender: FDA-Public Use
  Company Number: US-B.I. PHARMACEUTICALS,INC./RIDGEFIELD-2009-BP-13349BP

PATIENT
  Age: 63 Year
  Sex: Female

DRUGS (5)
  1. MIRAPEX [Suspect]
     Indication: PARKINSON'S DISEASE
     Route: 048
     Dates: start: 20020101, end: 20091101
  2. SELEGILINE HCL [Concomitant]
     Indication: PARKINSON'S DISEASE
  3. CARBIDOPA [Concomitant]
     Indication: PARKINSON'S DISEASE
  4. VICODIN [Concomitant]
     Indication: PAIN
  5. GABAPENTIN [Concomitant]
     Indication: UNEVALUABLE EVENT

REACTIONS (3)
  - CELLULITIS [None]
  - DRUG INEFFECTIVE [None]
  - OEDEMA PERIPHERAL [None]
